FAERS Safety Report 18594154 (Version 2)
Quarter: 2020Q4

REPORT INFORMATION
  Report Type: Spontaneous
  Country: US (occurrence: US)
  Receive Date: 20201209
  Receipt Date: 20201222
  Transmission Date: 20210114
  Serious: No
  Sender: FDA-Public Use
  Company Number: US-AMGEN-USASP2020200324

PATIENT
  Age: 72 Year
  Sex: Male
  Weight: 66.68 kg

DRUGS (1)
  1. ENBREL [Suspect]
     Active Substance: ETANERCEPT
     Indication: RHEUMATOID ARTHRITIS
     Dosage: 50 MILLIGRAM, QWK (50MG INJECTION ONCE A WEEK)
     Route: 065
     Dates: start: 2001

REACTIONS (1)
  - Therapeutic product effect decreased [Recovered/Resolved with Sequelae]
